FAERS Safety Report 5265965-7 (Version None)
Quarter: 2007Q1

REPORT INFORMATION
  Report Type: 
  Country: None (occurrence: None)
  Receive Date: 20070315
  Receipt Date: 20070302
  Transmission Date: 20070707
  Serious: Yes (Other)
  Sender: FDA-Public Use
  Company Number: PHBS2007JP04106

PATIENT
  Age: 67 Year
  Sex: Male

DRUGS (1)
  1. VOLTAREN [Suspect]
     Indication: ARTHRALGIA
     Dosage: 1 PATCH/DAY
     Route: 062
     Dates: start: 20070119

REACTIONS (1)
  - ANGINA PECTORIS [None]
